FAERS Safety Report 19059329 (Version 2)
Quarter: 2021Q1

REPORT INFORMATION
  Report Type: Report from Study
  Country: CA (occurrence: CA)
  Receive Date: 20210326
  Receipt Date: 20210330
  Transmission Date: 20210420
  Serious: Yes (Hospitalization)
  Sender: FDA-Public Use
  Company Number: CA-JNJFOC-20210323958

PATIENT
  Age: 74 Year
  Sex: Female

DRUGS (1)
  1. REMICADE [Suspect]
     Active Substance: INFLIXIMAB
     Indication: CROHN^S DISEASE
     Route: 042
     Dates: start: 20120802, end: 20210322

REACTIONS (6)
  - Polyp [Unknown]
  - Faeces discoloured [Unknown]
  - Haematemesis [Unknown]
  - Ulcer haemorrhage [Not Recovered/Not Resolved]
  - Haemoglobin decreased [Unknown]
  - Dizziness [Unknown]

NARRATIVE: CASE EVENT DATE: 20210315
